FAERS Safety Report 7424852-6 (Version None)
Quarter: 2011Q2

REPORT INFORMATION
  Report Type: 
  Country: None (occurrence: None)
  Receive Date: 20110419
  Receipt Date: 20110414
  Transmission Date: 20111010
  Serious: Yes (Life-Threatening)
  Sender: FDA-Public Use
  Company Number: FR-GILEAD-2010-0034605

PATIENT
  Sex: Female
  Weight: 65 kg

DRUGS (17)
  1. PREDNISONE [Concomitant]
     Indication: LIVER TRANSPLANT
     Dates: start: 20100922
  2. NICARDIPINE HCL [Suspect]
  3. RALTEGRAVIR [Concomitant]
  4. LAMIVUDINE [Concomitant]
     Indication: HIV INFECTION
  5. CELLCEPT [Concomitant]
     Indication: LIVER TRANSPLANT
     Dates: start: 20100922
  6. VALACICLOVIR [Concomitant]
     Indication: PROPHYLAXIS
     Dates: start: 20100922
  7. MOXIFLOXACIN [Concomitant]
     Indication: TUBERCULOSIS
     Dates: start: 20100927
  8. MYAMBUTOL [Concomitant]
     Indication: TUBERCULOSIS
     Dates: start: 20100927
  9. AMLODIPINE [Concomitant]
     Indication: PROPHYLAXIS
     Dates: start: 20100927
  10. ESOMEPRAZOLE [Concomitant]
     Indication: PROPHYLAXIS
     Dates: start: 20100927
  11. TENOFOVIR DISOPROXIL FUMARATE [Suspect]
     Indication: HIV INFECTION
  12. RABEPRAZOLE SODIUM [Suspect]
  13. ENOXAPARIN [Concomitant]
     Indication: PROPHYLAXIS
     Dates: start: 20100922
  14. NADROPARIN [Suspect]
     Indication: COAGULOPATHY
  15. BROMAZEPAM [Suspect]
  16. TACROLIMUS [Concomitant]
     Indication: LIVER TRANSPLANT
     Dates: start: 20100922
  17. TRIMEBUTINE [Suspect]

REACTIONS (1)
  - HEPATIC ARTERY THROMBOSIS [None]
